FAERS Safety Report 8831352 (Version 4)
Quarter: 2013Q3

REPORT INFORMATION
  Report Type: Report from Study
  Country: JP (occurrence: JP)
  Receive Date: 20121008
  Receipt Date: 20130906
  Transmission Date: 20140515
  Serious: Yes (Other)
  Sender: FDA-Public Use
  Company Number: JP-VERTEX PHARMACEUTICAL INC.-2012-022061

PATIENT
  Age: 66 Year
  Sex: Male

DRUGS (21)
  1. VX-950 (TELAPREVIR) [Suspect]
     Indication: CHRONIC HEPATITIS C
     Dosage: 1500 MG, QD
     Route: 048
     Dates: start: 20120615, end: 20120824
  2. VX-950 (TELAPREVIR) [Suspect]
     Dosage: 1000 MG, QD
     Route: 048
     Dates: start: 20120919, end: 20121002
  3. REBETOL [Suspect]
     Indication: CHRONIC HEPATITIS C
     Dosage: 600 MG, QD
     Route: 048
     Dates: start: 20120615, end: 20120704
  4. REBETOL [Suspect]
     Dosage: 400 MG, QD
     Route: 048
     Dates: start: 20120705, end: 20120803
  5. REBETOL [Suspect]
     Dosage: 200 MG, QD
     Route: 048
     Dates: start: 20120804, end: 20120824
  6. REBETOL [Suspect]
     Dosage: 200 MG, QD
     Route: 048
     Dates: start: 20120919, end: 20121225
  7. PEGINTRON [Suspect]
     Indication: CHRONIC HEPATITIS C
     Dosage: 1.5 ?G/KG, QW
     Route: 058
     Dates: start: 20120615, end: 20120817
  8. PEGINTRON [Suspect]
     Dosage: 1.5 ?G/KG, QW
     Route: 058
     Dates: start: 20120919, end: 20120919
  9. PEGINTRON [Suspect]
     Dosage: 1.5 ?G/KG, QW
     Route: 058
     Dates: start: 20121003, end: 20121219
  10. URSO [Concomitant]
     Dosage: 600 MG, QD
     Route: 048
     Dates: end: 20120824
  11. URSO [Concomitant]
     Dosage: 600 MG, QD
     Route: 048
     Dates: start: 20120919
  12. HARNAL [Concomitant]
     Dosage: 0.2 MG, QD
     Route: 048
     Dates: end: 20120824
  13. HARNAL [Concomitant]
     Dosage: 0.2 MG, QD
     Route: 048
     Dates: start: 20120919
  14. LANTUS [Concomitant]
     Dosage: 6 DF, QD
     Route: 058
     Dates: end: 20120603
  15. LANTUS [Concomitant]
     Dosage: 8 DF, QD
     Route: 058
     Dates: start: 20120604
  16. LANTUS [Concomitant]
     Dosage: 8 DF, QD
     Route: 058
     Dates: start: 20120919, end: 20121121
  17. LANTUS [Concomitant]
     Dosage: 10 DF, QD
     Route: 058
     Dates: start: 20121122
  18. NOVORAPID [Concomitant]
     Dosage: 24 DF, QD
     Route: 058
     Dates: start: 20120614
  19. NOVORAPID [Concomitant]
     Dosage: 24 DF, QD
     Route: 058
     Dates: start: 20120919, end: 20121121
  20. NOVORAPID [Concomitant]
     Dosage: 22 DF, QD
     Route: 058
     Dates: start: 20121122, end: 20121128
  21. NOVORAPID [Concomitant]
     Dosage: 24 DF, QD
     Route: 058
     Dates: start: 20121129

REACTIONS (2)
  - White blood cell count decreased [Not Recovered/Not Resolved]
  - Neutrophil count decreased [Recovered/Resolved]
